FAERS Safety Report 6053833-2 (Version None)
Quarter: 2009Q1

REPORT INFORMATION
  Report Type: 
  Country: None (occurrence: None)
  Receive Date: 20090127
  Receipt Date: 20081121
  Transmission Date: 20090719
  Serious: No
  Sender: FDA-Public Use
  Company Number: US-TEVA-181654USA

PATIENT
  Age: 44 Year
  Sex: Female

DRUGS (3)
  1. COPAXONE [Suspect]
     Indication: MULTIPLE SCLEROSIS
     Route: 058
     Dates: start: 20040501, end: 20081110
  2. BACLOFEN [Concomitant]
  3. GABAPENTIN [Concomitant]

REACTIONS (3)
  - INJECTION SITE HAEMATOMA [None]
  - INJECTION SITE INDURATION [None]
  - INJECTION SITE REACTION [None]
